FAERS Safety Report 5239987-6 (Version None)
Quarter: 2007Q1

REPORT INFORMATION
  Report Type: 
  Country: None (occurrence: None)
  Receive Date: 20070216
  Receipt Date: 20070210
  Transmission Date: 20070707
  Serious: Yes (Other)
  Sender: FDA-Public Use
  Company Number: US-PFIZER INC-2007000821

PATIENT
  Sex: Male
  Weight: 77.1 kg

DRUGS (5)
  1. TIKOSYN [Suspect]
     Indication: ATRIAL FIBRILLATION
  2. HYDROCHLOROTHIAZIDE [Concomitant]
     Dosage: DAILY DOSE:12.5MG-FREQ:3 TIMES A WEEK
  3. LIPITOR [Concomitant]
  4. COUMADIN [Concomitant]
  5. ENALAPRIL MALEATE [Concomitant]
     Indication: HYPERTENSION
     Dosage: DAILY DOSE:5MG-FREQ:DAILY

REACTIONS (2)
  - ATRIAL FIBRILLATION [None]
  - DRUG INEFFECTIVE [None]
